FAERS Safety Report 8365187-7 (Version None)
Quarter: 2012Q2

REPORT INFORMATION
  Report Type: 
  Country: None (occurrence: None)
  Receive Date: 20120514
  Receipt Date: 20120419
  Transmission Date: 20120825
  Serious: Yes (Hospitalization)
  Sender: FDA-Public Use
  Company Number: GB-022188

PATIENT
  Age: 81 Year
  Sex: Male

DRUGS (2)
  1. LEUKERAN [Suspect]
     Indication: CHRONIC LYMPHOCYTIC LEUKAEMIA
     Dosage: 10 MG/M2DAYS 1-7 EVERY 28 DAYS (10 MG/M2) ORAL
     Route: 048
     Dates: start: 20101117
  2. OFATUMUMAB (OFATUMUMAB) [Suspect]
     Indication: CHRONIC LYMPHOCYTIC LEUKAEMIA
     Dosage: 300MGAT DAY 1, 1000MG AT DAY 8 FOLLOWED BY 1000MG EVERY 28 DAYS INTRAVENOUS(NOT OTHERWISE SPECIFIED)
     Route: 042
     Dates: start: 20101117

REACTIONS (3)
  - MALAISE [None]
  - NEUTROPENIC SEPSIS [None]
  - NASOPHARYNGITIS [None]
